FAERS Safety Report 19894695 (Version 2)
Quarter: 2021Q4

REPORT INFORMATION
  Report Type: Report from Study
  Country: DE (occurrence: DE)
  Receive Date: 20210929
  Receipt Date: 20211025
  Transmission Date: 20220303
  Serious: Yes (Death, Hospitalization)
  Sender: FDA-Public Use
  Company Number: None

PATIENT
  Age: 69 Year
  Sex: Male

DRUGS (18)
  1. CARBOPLATIN [Suspect]
     Active Substance: CARBOPLATIN
     Indication: Non-small cell lung cancer
     Dosage: 97 MG/MINXML LAST DOSE PRIOR TO EVENT : 594 MG/MINXML ON 17/OCT/2019
     Route: 042
     Dates: start: 20191010, end: 20191017
  2. PACLITAXEL [Suspect]
     Active Substance: PACLITAXEL
     Indication: Non-small cell lung cancer
     Dosage: LAST DOSE PRIOR TO EVENT : 194 MG/M*2 ON 17/OCT/2019
     Route: 042
     Dates: start: 20191010
  3. ATEZOLIZUMAB [Suspect]
     Active Substance: ATEZOLIZUMAB
     Indication: Non-small cell lung cancer
     Dosage: LAST DOSE PRIOR TO EVENT :1200 MG DATE OF LAST DOSE TAKEN PRIOR TO EVENT?02/JAN/2020
     Route: 042
     Dates: start: 20191010
  4. PEGFILGRASTIM [Concomitant]
     Active Substance: PEGFILGRASTIM
     Route: 058
     Dates: start: 20191219, end: 20191219
  5. GRANISETRON [Concomitant]
     Active Substance: GRANISETRON
     Route: 042
     Dates: start: 20191010
  6. BISOPROLOL [Concomitant]
     Active Substance: BISOPROLOL
     Indication: Hypertension
     Route: 048
     Dates: start: 20190902
  7. ALLOPURINOL [Concomitant]
     Active Substance: ALLOPURINOL
     Indication: Hyperuricaemia
     Route: 048
     Dates: start: 20190902
  8. NETUPITANT [Concomitant]
     Active Substance: NETUPITANT
     Route: 042
     Dates: start: 20191010
  9. RAMIPRIL [Concomitant]
     Active Substance: RAMIPRIL
     Indication: Hypertension
     Route: 048
     Dates: start: 20190902
  10. ASPIRIN [Concomitant]
     Active Substance: ASPIRIN
     Indication: Iliac artery stenosis
     Route: 048
     Dates: start: 20190902
  11. PALONOSETRON. [Concomitant]
     Active Substance: PALONOSETRON HYDROCHLORIDE
     Route: 042
     Dates: start: 20191010
  12. TAZOBACTAM [Concomitant]
     Active Substance: TAZOBACTAM
     Route: 048
     Dates: start: 20191023, end: 20191028
  13. PANTOPRAZOLE [Concomitant]
     Active Substance: PANTOPRAZOLE
     Route: 048
     Dates: start: 20200130
  14. ATORVASTATIN [Concomitant]
     Active Substance: ATORVASTATIN
     Indication: Iliac artery stenosis
     Route: 048
     Dates: start: 20190902
  15. DEXAMETHASONE [Concomitant]
     Active Substance: DEXAMETHASONE
     Route: 042
     Dates: start: 20191010
  16. TORSEMIDE [Concomitant]
     Active Substance: TORSEMIDE
     Indication: Emphysema
     Route: 048
     Dates: start: 20190902
  17. PIPERACILLIN. [Concomitant]
     Active Substance: PIPERACILLIN SODIUM
     Route: 048
     Dates: start: 20191023, end: 20191028
  18. GRANULOCYTE COLONY-STIMULATING FACTOR NOS [Concomitant]
     Active Substance: GRANULOCYTE COLONY-STIMULATING FACTOR NOS
     Route: 058
     Dates: start: 20191022, end: 20191024

REACTIONS (14)
  - Febrile infection [Recovered/Resolved]
  - Leukopenia [Not Recovered/Not Resolved]
  - Stomatitis [Recovered/Resolved]
  - Decreased appetite [Recovered/Resolved]
  - Fatigue [Recovered/Resolved]
  - Autoimmune colitis [Fatal]
  - Pain in extremity [Recovered/Resolved]
  - Diarrhoea [Recovered/Resolved]
  - Subclavian artery occlusion [Recovered/Resolved]
  - Anaemia [Recovered/Resolved]
  - Asthenia [Recovered/Resolved]
  - Haematochezia [Recovered/Resolved]
  - Skin ulcer [Recovered/Resolved]
  - Upper gastrointestinal haemorrhage [Recovered/Resolved]

NARRATIVE: CASE EVENT DATE: 20191020
